FAERS Safety Report 11553857 (Version 2)
Quarter: 2015Q4

REPORT INFORMATION
  Report Type: Report from Study
  Country: US (occurrence: US)
  Receive Date: 20150925
  Receipt Date: 20151006
  Transmission Date: 20160304
  Serious: No
  Sender: FDA-Public Use
  Company Number: US-AMGEN-USASP2015096060

PATIENT
  Age: 62 Year
  Sex: Female

DRUGS (1)
  1. ENBREL [Suspect]
     Active Substance: ETANERCEPT
     Indication: RHEUMATOID ARTHRITIS
     Dosage: 50 MG, QWK
     Route: 065

REACTIONS (8)
  - Seasonal allergy [Unknown]
  - Eye pruritus [Unknown]
  - Injection site warmth [Unknown]
  - Injection site swelling [Unknown]
  - Rhinorrhoea [Unknown]
  - Drug effect decreased [Unknown]
  - Injection site erythema [Unknown]
  - Sneezing [Unknown]

NARRATIVE: CASE EVENT DATE: 2015
